FAERS Safety Report 24829759 (Version 1)
Quarter: 2025Q1

REPORT INFORMATION
  Report Type: Spontaneous
  Country: US (occurrence: US)
  Receive Date: 20250110
  Receipt Date: 20250110
  Transmission Date: 20250409
  Serious: No
  Sender: BAUSCH AND LOMB
  Company Number: US-BAUSCHBL-2025BNL000185

PATIENT
  Age: 67 Year
  Sex: Female

DRUGS (6)
  1. LUMIFY [Suspect]
     Active Substance: BRIMONIDINE TARTRATE
     Indication: Product used for unknown indication
     Route: 065
  2. LUMIFY [Suspect]
     Active Substance: BRIMONIDINE TARTRATE
  3. BLINK TRIPLE CARE [Suspect]
     Active Substance: POLYETHYLENE GLYCOL 400
     Indication: Dry eye
     Route: 065
     Dates: start: 202412
  4. BLINK TRIPLE CARE [Suspect]
     Active Substance: POLYETHYLENE GLYCOL 400
  5. BLINK TEARS [Suspect]
     Active Substance: POLYETHYLENE GLYCOL 400
     Indication: Dry eye
     Route: 065
     Dates: start: 20241216
  6. BLINK TEARS [Suspect]
     Active Substance: POLYETHYLENE GLYCOL 400

REACTIONS (6)
  - Erythema [Unknown]
  - Ocular hyperaemia [Unknown]
  - Eyelids pruritus [Unknown]
  - Visual impairment [Unknown]
  - Rhinorrhoea [Unknown]
  - Eye irritation [Unknown]

NARRATIVE: CASE EVENT DATE: 20240101
